FAERS Safety Report 6031077-8 (Version None)
Quarter: 2009Q1

REPORT INFORMATION
  Report Type: 
  Country: None (occurrence: None)
  Receive Date: 20090108
  Receipt Date: 20081223
  Transmission Date: 20090719
  Serious: Yes (Other)
  Sender: FDA-Public Use
  Company Number: NL-BAYER-200832903GPV

PATIENT
  Age: 46 Year
  Sex: Male

DRUGS (11)
  1. NEXAVAR [Suspect]
     Indication: HEPATIC NEOPLASM MALIGNANT
     Dosage: TOTAL DAILY DOSE: 400 MG
     Route: 048
     Dates: start: 20081216
  2. NEXAVAR [Suspect]
     Dosage: TOTAL DAILY DOSE: 200 MG
     Route: 048
     Dates: start: 20081211, end: 20081216
  3. TENOFOVIR [Concomitant]
     Indication: HIV INFECTION
     Route: 048
  4. LAMIVUDINE [Concomitant]
     Indication: HIV INFECTION
     Route: 048
  5. ADEFOVIR DIPIVOXIL KIT [Concomitant]
     Indication: HIV INFECTION
     Route: 048
  6. OXYNORM [Concomitant]
     Indication: ANALGESIC THERAPY
     Route: 048
  7. TEMAZEPAM [Concomitant]
     Indication: SEDATIVE THERAPY
     Route: 048
  8. DURAGESIC-100 [Concomitant]
     Indication: ANALGESIC THERAPY
     Route: 003
  9. NEXIUM [Concomitant]
     Indication: PROPHYLAXIS
     Dosage: TOTAL DAILY DOSE: 40 MG
     Route: 048
  10. MAGNESIUM HYDROXIDE TAB [Concomitant]
     Indication: LAXATIVE SUPPORTIVE CARE
     Route: 048
  11. METOCLOPRAMIDE [Concomitant]
     Indication: NAUSEA
     Route: 048

REACTIONS (6)
  - CHROMATURIA [None]
  - METASTASES TO LUNG [None]
  - METASTASES TO LYMPH NODES [None]
  - URINARY RETENTION [None]
  - URINE ANALYSIS ABNORMAL [None]
  - VOMITING [None]
